FAERS Safety Report 7191205-8 (Version None)
Quarter: 2010Q4

REPORT INFORMATION
  Report Type: 
  Country: None (occurrence: None)
  Receive Date: 20101223
  Receipt Date: 20101210
  Transmission Date: 20110411
  Serious: Yes (Hospitalization)
  Sender: FDA-Public Use
  Company Number: IT-CELGENEUS-083-21880-10121340

PATIENT
  Sex: Male

DRUGS (5)
  1. REVLIMID [Suspect]
     Indication: MULTIPLE MYELOMA
     Route: 048
     Dates: start: 20101030, end: 20101121
  2. CARDIOASPIRIN [Concomitant]
     Route: 065
  3. LYRICA [Concomitant]
     Route: 065
  4. TAREG [Concomitant]
     Route: 065
  5. VALACICLOVIR [Concomitant]
     Route: 065

REACTIONS (3)
  - ANURIA [None]
  - DISORIENTATION [None]
  - RENAL FAILURE [None]
